FAERS Safety Report 6497095-0 (Version None)
Quarter: 2009Q4

REPORT INFORMATION
  Report Type: 
  Country: None (occurrence: None)
  Receive Date: 20091215
  Receipt Date: 20090304
  Transmission Date: 20100525
  Serious: No
  Sender: FDA-Public Use
  Company Number: A0771531A

PATIENT
  Age: 61 Year
  Sex: Male

DRUGS (7)
  1. AVODART [Suspect]
     Dosage: .5MG PER DAY
     Route: 048
     Dates: end: 20090125
  2. ATENOLOL [Concomitant]
  3. LISINOPRIL [Concomitant]
  4. UNKNOWN [Concomitant]
  5. FLOMAX [Concomitant]
  6. NEXIUM [Concomitant]
  7. SIMVASTATIN [Concomitant]

REACTIONS (2)
  - BREAST ENLARGEMENT [None]
  - BREAST PAIN [None]
